FAERS Safety Report 5673176-6 (Version None)
Quarter: 2008Q1

REPORT INFORMATION
  Report Type: 
  Country: None (occurrence: None)
  Receive Date: 20080319
  Receipt Date: 20080314
  Transmission Date: 20080703
  Serious: Yes (Death)
  Sender: FDA-Public Use
  Company Number: US-JNJFOC-20080303798

PATIENT
  Sex: Male

DRUGS (10)
  1. CYCLOBENZAPRINE HCL [Suspect]
     Indication: DRUG USE FOR UNKNOWN INDICATION
     Route: 048
  2. OPANA ER [Suspect]
     Indication: PAIN
     Route: 048
  3. CLONAZEPAM [Suspect]
     Indication: ANXIETY
     Route: 048
  4. MICARDIS [Suspect]
     Indication: HYPERTENSION
     Route: 048
  5. BACLOFEN [Suspect]
     Indication: DRUG USE FOR UNKNOWN INDICATION
     Route: 048
  6. ROZEREM [Suspect]
     Indication: INSOMNIA
  7. AMITRIPTYLINE HCL [Suspect]
     Indication: ANXIETY
     Route: 048
  8. AMITRIPTYLINE HCL [Suspect]
     Indication: DEPRESSION
     Route: 048
  9. WELLBUTRIN XL [Suspect]
     Indication: DEPRESSION
     Route: 048
  10. OXYCODONE HCL [Suspect]
     Indication: PAIN
     Dosage: 5-10 MG TWICE A DAY AS NECESSARY
     Route: 048

REACTIONS (1)
  - DRUG TOXICITY [None]
